FAERS Safety Report 6959847-X (Version None)
Quarter: 2010Q3

REPORT INFORMATION
  Report Type: 
  Country: None (occurrence: None)
  Receive Date: 20100901
  Receipt Date: 20100824
  Transmission Date: 20110219
  Serious: No
  Sender: FDA-Public Use
  Company Number: US-BIOGENIDEC-2010BI029803

PATIENT
  Age: 52 Year
  Sex: Female

DRUGS (3)
  1. TYSABRI [Suspect]
     Indication: MULTIPLE SCLEROSIS
     Route: 042
     Dates: start: 20071025, end: 20080919
  2. TYSABRI [Suspect]
     Route: 042
     Dates: start: 20100414
  3. PRESCRIPTION MEDICATION [NOS] [Concomitant]
     Indication: PAIN

REACTIONS (1)
  - PAIN [None]
